FAERS Safety Report 8579173-5 (Version None)
Quarter: 2012Q3

REPORT INFORMATION
  Report Type: 
  Country: None (occurrence: None)
  Receive Date: 20120808
  Receipt Date: 20120806
  Transmission Date: 20120928
  Serious: No
  Sender: FDA-Public Use
  Company Number: US-PFIZER INC-2012191190

PATIENT
  Age: 59 Year
  Sex: Female
  Weight: 40 kg

DRUGS (5)
  1. LYRICA [Suspect]
     Indication: FIBROMYALGIA
     Dosage: 25 MG, 1X/DAY
     Route: 048
     Dates: start: 20120724
  2. TRAMADOL [Concomitant]
     Indication: TOOTHACHE
     Dosage: 25 MG, AS NEEDED
  3. IBUPROFEN [Concomitant]
     Dosage: UNK, AS NEEDED
  4. LYRICA [Suspect]
     Indication: MYOFASCIAL PAIN SYNDROME
  5. PRAVASTATIN [Concomitant]
     Indication: BLOOD CHOLESTEROL INCREASED
     Dosage: UNK

REACTIONS (1)
  - TOOTHACHE [None]
